FAERS Safety Report 4500894-5 (Version None)
Quarter: 2004Q4

REPORT INFORMATION
  Report Type: 
  Country: None (occurrence: None)
  Receive Date: 20041109
  Receipt Date: 20041028
  Transmission Date: 20050328
  Serious: Yes (Other)
  Sender: FDA-Public Use
  Company Number: 2004069663

PATIENT
  Age: 74 Year
  Sex: Male
  Weight: 85.2762 kg

DRUGS (20)
  1. LIPITOR [Suspect]
     Indication: BLOOD CHOLESTEROL INCREASED
     Dosage: 10 MG (10 MG, 1 IN 1 D), ORAL
     Route: 048
     Dates: start: 19990101
  2. LEUPRORELIN ACETATE (LEUPRORELIN ACETATE) [Suspect]
     Indication: PROSTATE CANCER
     Dosage: ( 1 IN 1 M)
     Dates: start: 20030101
  3. OMEPRAZOLE [Concomitant]
  4. VALSARTAN (VALSARTAN) [Concomitant]
  5. HYDROCHLOROTHIAZIDE [Concomitant]
  6. TAMSULOSIN (TAMSULOSIN) [Concomitant]
  7. IRBESARTAN [Concomitant]
  8. LEVOTHYROXINE SODIUM [Concomitant]
  9. ASPIRIN [Concomitant]
  10. TOCOPHEROL CONCENTRATE CAP [Concomitant]
  11. ASCORBIC ACID [Concomitant]
  12. B-KOMPLEX ^LEVICA^ (CALCIUM PANTOTHENATE, NICOTINAMIDE, PYRIDOXINE HYD [Concomitant]
  13. UBIDECARENONE (UBICECARENONE) [Concomitant]
  14. FOLIC ACID [Concomitant]
  15. FINASTERIDE [Concomitant]
  16. GARLIC (GARLIC) [Concomitant]
  17. FEXOFENADINE HYDROCHLORIDE [Concomitant]
  18. CALCIUM (CALCIUM) [Concomitant]
  19. MAGNESIUM (MAGNESIUM) [Concomitant]
  20. CYANOCOBALAMIN (CYANOCOBALAMIN) [Concomitant]

REACTIONS (7)
  - ARTHRALGIA [None]
  - BLOOD CHOLESTEROL INCREASED [None]
  - FATIGUE [None]
  - MOBILITY DECREASED [None]
  - MYALGIA [None]
  - PAIN IN EXTREMITY [None]
  - WEIGHT INCREASED [None]
